FAERS Safety Report 5957656-1 (Version None)
Quarter: 2008Q4

REPORT INFORMATION
  Report Type: 
  Country: None (occurrence: None)
  Receive Date: 20081110
  Receipt Date: 20081028
  Transmission Date: 20090506
  Serious: Yes (Other)
  Sender: FDA-Public Use
  Company Number: CHPA2008US18575

PATIENT
  Age: 17 Year
  Sex: Male

DRUGS (2)
  1. TRIAMINIC SRT [Suspect]
  2. DIMETAPP [Suspect]

REACTIONS (1)
  - CONVULSION [None]
